FAERS Safety Report 6121038-2 (Version None)
Quarter: 2009Q1

REPORT INFORMATION
  Report Type: 
  Country: None (occurrence: None)
  Receive Date: 20090317
  Receipt Date: 20090306
  Transmission Date: 20090719
  Serious: Yes (Other)
  Sender: FDA-Public Use
  Company Number: BE-NOVOPROD-284983

PATIENT
  Age: 55 Year
  Sex: Female

DRUGS (6)
  1. LEVEMIR [Suspect]
     Indication: DRUG USE FOR UNKNOWN INDICATION
     Dosage: UNKNOWN
  2. NOVORAPID [Suspect]
     Indication: DRUG USE FOR UNKNOWN INDICATION
     Dosage: UNKNOWN
  3. HUMALOG [Concomitant]
  4. LANTUS [Concomitant]
  5. GLUCOPHAGE [Concomitant]
  6. REPAGLINIDE [Concomitant]

REACTIONS (2)
  - ANGIOEDEMA [None]
  - ERYTHEMA [None]
